FAERS Safety Report 9957560 (Version 2)
Quarter: 2014Q1

REPORT INFORMATION
  Report Type: Report from Study
  Country: US (occurrence: US)
  Receive Date: 20140304
  Receipt Date: 20140304
  Transmission Date: 20141002
  Serious: No
  Sender: FDA-Public Use
  Company Number: US-ABBVIE-13P-163-1077179-00

PATIENT
  Sex: 0

DRUGS (4)
  1. HUMIRA [Suspect]
     Indication: CROHN^S DISEASE
     Route: 058
     Dates: start: 20130419, end: 20130419
  2. HUMIRA [Suspect]
     Route: 058
     Dates: start: 20130503, end: 20130503
  3. HUMIRA [Suspect]
     Route: 058
     Dates: start: 20130517
  4. PENTASA [Concomitant]
     Indication: CROHN^S DISEASE

REACTIONS (4)
  - Injection site pain [Unknown]
  - Injection site pain [Unknown]
  - Nasopharyngitis [Unknown]
  - Bronchitis [Unknown]
